FAERS Safety Report 20157306 (Version 1)
Quarter: 2021Q4

REPORT INFORMATION
  Report Type: Spontaneous
  Country: US (occurrence: US)
  Receive Date: 20211207
  Receipt Date: 20211207
  Transmission Date: 20220303
  Serious: No
  Sender: FDA-Public Use
  Company Number: US-IBSA PHARMA INC.-2020IBS000272

PATIENT

DRUGS (3)
  1. TIROSINT [Suspect]
     Active Substance: LEVOTHYROXINE SODIUM
     Indication: Hypopituitarism
     Dosage: 75 ?G, QD
     Route: 048
  2. ESTROGEL [Concomitant]
     Active Substance: ESTRADIOL
     Indication: Product used for unknown indication
  3. PROGESTERONE [Concomitant]
     Active Substance: PROGESTERONE
     Indication: Product used for unknown indication

REACTIONS (4)
  - Reflux gastritis [Not Recovered/Not Resolved]
  - Abdominal pain upper [Not Recovered/Not Resolved]
  - Palpitations [Not Recovered/Not Resolved]
  - Fatigue [Not Recovered/Not Resolved]
